FAERS Safety Report 7769198-1 (Version None)
Quarter: 2011Q3

REPORT INFORMATION
  Report Type: 
  Country: None (occurrence: None)
  Receive Date: 20110922
  Receipt Date: 20110914
  Transmission Date: 20111222
  Serious: Yes (Hospitalization)
  Sender: FDA-Public Use
  Company Number: US-ROCHE-721337

PATIENT
  Sex: Female
  Weight: 66 kg

DRUGS (2)
  1. LAPATINIB [Suspect]
     Indication: BREAST CANCER
     Dosage: 1000 MG, QD
     Route: 048
     Dates: start: 20100429
  2. CAPECITABINE [Suspect]
     Indication: BREAST CANCER
     Dosage: 1200 MG, BID
     Route: 048
     Dates: start: 20100429

REACTIONS (1)
  - SYNCOPE [None]
